FAERS Safety Report 5311950-6 (Version None)
Quarter: 2007Q2

REPORT INFORMATION
  Report Type: 
  Country: None (occurrence: None)
  Receive Date: 20070430
  Receipt Date: 20060530
  Transmission Date: 20071010
  Serious: No
  Sender: FDA-Public Use
  Company Number: 2006UW10477

PATIENT
  Age: 38 Year
  Sex: Male
  Weight: 75.7 kg

DRUGS (3)
  1. NEXIUM [Suspect]
     Indication: REFLUX OESOPHAGITIS
     Route: 048
     Dates: start: 20060525, end: 20060527
  2. NEXIUM [Suspect]
     Route: 048
     Dates: end: 20060524
  3. ACIDOPHILUS [Concomitant]

REACTIONS (7)
  - CHILLS [None]
  - FATIGUE [None]
  - HEADACHE [None]
  - HEART RATE INCREASED [None]
  - PYREXIA [None]
  - SKIN BURNING SENSATION [None]
  - SKIN DISORDER [None]
